FAERS Safety Report 4941163-9 (Version None)
Quarter: 2006Q1

REPORT INFORMATION
  Report Type: 
  Country: None (occurrence: None)
  Receive Date: 20060308
  Receipt Date: 20060223
  Transmission Date: 20060701
  Serious: Yes (Death)
  Sender: FDA-Public Use
  Company Number: FRWYE423623FEB06

PATIENT
  Age: 52 Year
  Sex: Female

DRUGS (3)
  1. TIGECYCLINE (TIGECYCLINE, INJECTION) [Suspect]
     Indication: ACINETOBACTER BACTERAEMIA
     Dosage: INTRAVENOUS
     Route: 042
     Dates: start: 20051001
  2. TIGECYCLINE (TIGECYCLINE, INJECTION) [Suspect]
     Indication: STAPHYLOCOCCAL BACTERAEMIA
     Dosage: INTRAVENOUS
     Route: 042
     Dates: start: 20051001
  3. TICARCILLIN (TICARCILLIN) [Concomitant]

REACTIONS (4)
  - BRADYCARDIA [None]
  - CARDIAC ARREST [None]
  - FUNGAEMIA [None]
  - SHOCK [None]
